FAERS Safety Report 15880541 (Version 1)
Quarter: 2019Q1

REPORT INFORMATION
  Report Type: Spontaneous
  Country: US (occurrence: US)
  Receive Date: 20190128
  Receipt Date: 20190128
  Transmission Date: 20190417
  Serious: No
  Sender: FDA-Public Use
  Company Number: US-TEVA-2019-US-999535

PATIENT
  Age: 80 Year
  Sex: Female

DRUGS (6)
  1. AZITHROMYCIN TABLET [Suspect]
     Active Substance: AZITHROMYCIN
     Indication: EAR DISORDER
  2. AZITHROMYCIN TABLET [Suspect]
     Active Substance: AZITHROMYCIN
     Indication: EAR INFECTION
  3. MAGNESIUM [Concomitant]
     Active Substance: MAGNESIUM
     Route: 065
  4. AZITHROMYCIN TABLET [Suspect]
     Active Substance: AZITHROMYCIN
     Indication: PHARYNGITIS STREPTOCOCCAL
     Route: 065
     Dates: start: 20190114
  5. FENOFIBRATE. [Concomitant]
     Active Substance: FENOFIBRATE
     Route: 065
  6. UNKNOWN GREEN VITAMIN [Concomitant]
     Route: 065

REACTIONS (2)
  - Dizziness [Unknown]
  - Dyspnoea [Unknown]

NARRATIVE: CASE EVENT DATE: 20190114
